FAERS Safety Report 4668142-3 (Version None)
Quarter: 2005Q2

REPORT INFORMATION
  Report Type: 
  Country: None (occurrence: None)
  Receive Date: 20050521
  Receipt Date: 20041216
  Transmission Date: 20051028
  Serious: Yes (Other)
  Sender: FDA-Public Use
  Company Number: PHEH2004US13441

PATIENT
  Age: 69 Year
  Sex: Male

DRUGS (37)
  1. VINCRISTINE + ADRIAMYCIN + DEXAMETHASONE [Concomitant]
  2. CYTOXAN [Concomitant]
  3. MELPHALAN [Concomitant]
  4. INTERFERON [Concomitant]
  5. DEXAMETHASONE [Concomitant]
  6. VELCADE [Concomitant]
  7. PS 341 [Concomitant]
  8. PREDNISONE [Concomitant]
  9. NEURONTIN [Concomitant]
  10. THALIDOMIDE [Concomitant]
  11. MS CONTIN [Concomitant]
  12. OXYCODONE HCL [Concomitant]
  13. AXID [Concomitant]
  14. PRILOSEC [Concomitant]
  15. VASOTEC [Concomitant]
  16. AMLODIPINE BESYLATE [Concomitant]
  17. LEVAQUIN [Concomitant]
  18. PERCOCET [Concomitant]
  19. ALLOPURINOL [Concomitant]
  20. TRILISATE [Concomitant]
  21. SENOKOT /USA/ [Concomitant]
  22. COLACE [Concomitant]
  23. BACTRIM DS [Concomitant]
  24. ACYCLOVIR [Concomitant]
  25. DIFLUCAN [Concomitant]
  26. VANCOMYCIN [Concomitant]
  27. NYSTATIN [Concomitant]
  28. TYLENOL (CAPLET) [Concomitant]
  29. QUININE SULFATE [Concomitant]
  30. PRINIVIL [Concomitant]
  31. IBUPROFEN [Concomitant]
  32. FAMVIR /UNK/ [Concomitant]
  33. ELAVIL [Concomitant]
  34. MYCELEX [Concomitant]
  35. ARANESP [Concomitant]
  36. HYDROCHLOROTHIAZIDE [Concomitant]
  37. ZOMETA [Suspect]
     Indication: MULTIPLE MYELOMA
     Dosage: 4 MG/ Q4WKS
     Dates: start: 20020620, end: 20041111

REACTIONS (4)
  - BONE DISORDER [None]
  - GENERAL PHYSICAL HEALTH DETERIORATION [None]
  - JAW DISORDER [None]
  - OSTEONECROSIS [None]
